FAERS Safety Report 15785827 (Version 1)
Quarter: 2019Q1

REPORT INFORMATION
  Report Type: Report from Study
  Country: PE (occurrence: PE)
  Receive Date: 20190103
  Receipt Date: 20190103
  Transmission Date: 20190417
  Serious: Yes (Other)
  Sender: FDA-Public Use
  Company Number: PE-SA-2018SA393496

PATIENT
  Age: 87 Year
  Sex: Female

DRUGS (4)
  1. HYDROCHLOROTHIAZIDE/IRBESARTAN [Suspect]
     Active Substance: HYDROCHLOROTHIAZIDE\IRBESARTAN
     Indication: BLOOD PRESSURE INCREASED
     Dosage: 300 MG/25 MG, QD
     Route: 048
     Dates: start: 201605
  2. IRBESARTAN. [Concomitant]
     Active Substance: IRBESARTAN
     Indication: BLOOD PRESSURE INCREASED
     Dosage: 150 MG, QD
     Route: 048
     Dates: start: 2016
  3. IBUPROFEN. [Concomitant]
     Active Substance: IBUPROFEN
     Indication: OSTEOARTHRITIS
     Dosage: UNK UNK, QD
     Route: 048
     Dates: start: 2016
  4. NEBILET [Concomitant]
     Active Substance: NEBIVOLOL
     Indication: BLOOD PRESSURE INCREASED
     Dosage: 2.5 DF, BID
     Route: 048
     Dates: start: 2016

REACTIONS (8)
  - Osteoporosis [Not Recovered/Not Resolved]
  - Cerebral ischaemia [Unknown]
  - Arthralgia [Not Recovered/Not Resolved]
  - Spinal osteoarthritis [Not Recovered/Not Resolved]
  - Lymphangitis [Not Recovered/Not Resolved]
  - Hemiparesis [Unknown]
  - Joint effusion [Not Recovered/Not Resolved]
  - Arteriosclerosis [Unknown]

NARRATIVE: CASE EVENT DATE: 20180918
